FAERS Safety Report 8420542-1 (Version None)
Quarter: 2012Q2

REPORT INFORMATION
  Report Type: 
  Country: None (occurrence: None)
  Receive Date: 20120608
  Receipt Date: 20120529
  Transmission Date: 20120825
  Serious: Yes (Death, Hospitalization, Other)
  Sender: FDA-Public Use
  Company Number: US-BIOGENIDEC-2012BI018974

PATIENT
  Age: 60 Year
  Sex: Female

DRUGS (1)
  1. AVONEX [Suspect]
     Indication: MULTIPLE SCLEROSIS
     Route: 030
     Dates: start: 20080101, end: 20111115

REACTIONS (5)
  - DYSPNOEA [None]
  - BREAST CANCER [None]
  - RENAL FAILURE [None]
  - HAEMATOCHEZIA [None]
  - BREAST CANCER METASTATIC [None]
